FAERS Safety Report 7398173-4 (Version None)
Quarter: 2011Q2

REPORT INFORMATION
  Report Type: 
  Country: None (occurrence: None)
  Receive Date: 20110406
  Receipt Date: 20110324
  Transmission Date: 20111010
  Serious: Yes (Other)
  Sender: FDA-Public Use
  Company Number: PHHY2011SK27867

PATIENT
  Age: 58 Year
  Sex: Female

DRUGS (1)
  1. ZOMETA [Suspect]
     Dosage: 4 MG, FOR EVERY 4 WEEKS
     Dates: start: 20090101, end: 20110101

REACTIONS (1)
  - OSTEONECROSIS OF JAW [None]
